FAERS Safety Report 11714348 (Version 1)
Quarter: 2015Q4

REPORT INFORMATION
  Report Type: Spontaneous
  Country: US (occurrence: None)
  Receive Date: 20151106
  Receipt Date: 20151106
  Transmission Date: 20160304
  Serious: No
  Sender: FDA-Public Use
  Company Number: None

PATIENT
  Age: 87 Year
  Sex: Male

DRUGS (9)
  1. CARTIA XT [Concomitant]
     Active Substance: DILTIAZEM HYDROCHLORIDE
  2. HYDROCO/APAP [Concomitant]
     Active Substance: ACETAMINOPHEN\HYDROCODONE
  3. ZYTIGA [Suspect]
     Active Substance: ABIRATERONE ACETATE
     Indication: NEOPLASM MALIGNANT
     Route: 048
     Dates: start: 20151002
  4. ARICEPT [Concomitant]
     Active Substance: DONEPEZIL HYDROCHLORIDE
  5. DEXAMETHASON [Concomitant]
     Active Substance: DEXAMETHASONE
  6. CEPHALEXIN. [Concomitant]
     Active Substance: CEPHALEXIN
  7. WARFARIN [Concomitant]
     Active Substance: WARFARIN
  8. DIGOX [Concomitant]
     Active Substance: DIGOXIN
  9. CASODEX [Concomitant]
     Active Substance: BICALUTAMIDE

REACTIONS (2)
  - Laboratory test abnormal [None]
  - Therapy cessation [None]
